FAERS Safety Report 7508509-9 (Version None)
Quarter: 2011Q2

REPORT INFORMATION
  Report Type: 
  Country: None (occurrence: None)
  Receive Date: 20110527
  Receipt Date: 20110523
  Transmission Date: 20111010
  Serious: Yes (Life-Threatening)
  Sender: FDA-Public Use
  Company Number: DE-PFIZER INC-2011110981

PATIENT
  Age: 49 Year
  Sex: Male

DRUGS (15)
  1. RAMIPRIL [Concomitant]
     Dosage: 2.5 MG
     Dates: start: 20100101
  2. MAGNESIUM OXIDE HEAVY [Concomitant]
  3. AZITHROMYCIN [Suspect]
     Indication: INFECTION PROPHYLAXIS
     Dosage: 250 MG, ALTERNATE DAY
     Route: 048
     Dates: start: 20110511, end: 20110513
  4. AMINO ACIDS NOS/GLUCOSE [Concomitant]
  5. LEVOFLOXACIN [Concomitant]
  6. LYRICA [Concomitant]
  7. KALINOR RETARD [Concomitant]
     Indication: HYPOKALAEMIA
     Dosage: 2 DF, 4X/DAY
     Route: 048
     Dates: start: 20110503
  8. PROGRAF [Concomitant]
  9. ENOXAPARIN SODIUM [Concomitant]
  10. SYMBICORT [Concomitant]
  11. PANTOPRAZOLE [Concomitant]
     Dosage: UNK
     Route: 048
     Dates: start: 20090101
  12. SULFAMETHOXAZOLE AND TRIMETHOPRIM [Concomitant]
     Indication: PROPHYLAXIS
     Dosage: 960 MG
     Route: 048
     Dates: start: 20090101
  13. POSACONAZOLE [Concomitant]
  14. DECORTIN-H [Concomitant]
  15. SERTRALINE [Concomitant]
     Dosage: 50 MG, UNK
     Dates: start: 20100101

REACTIONS (1)
  - ANGINA PECTORIS [None]
